FAERS Safety Report 16208398 (Version 6)
Quarter: 2019Q2

REPORT INFORMATION
  Report Type: Spontaneous
  Country: DE (occurrence: DE)
  Receive Date: 20190417
  Receipt Date: 20190424
  Transmission Date: 20190711
  Serious: Yes (Life-Threatening, Hospitalization)
  Sender: FDA-Public Use
  Company Number: PHHY2019DE086665

PATIENT
  Age: 22 Year
  Sex: Female

DRUGS (3)
  1. ORTOTON (METHOCARBAMOL) [Suspect]
     Active Substance: METHOCARBAMOL
     Indication: MUSCLE TIGHTNESS
     Dosage: 2 DF, TID
     Route: 048
     Dates: start: 20190326, end: 20190326
  2. DICLOFENAC [Suspect]
     Active Substance: DICLOFENAC
     Indication: PRODUCT USED FOR UNKNOWN INDICATION
     Dosage: 1 DF, TID
     Route: 048
  3. ORTOTON (METHOCARBAMOL) [Suspect]
     Active Substance: METHOCARBAMOL
     Indication: NECK PAIN
     Dosage: UNK
     Route: 065

REACTIONS (3)
  - Loss of consciousness [Recovered/Resolved]
  - Seizure [Recovered/Resolved]
  - Syncope [Recovered/Resolved]

NARRATIVE: CASE EVENT DATE: 20190326
